FAERS Safety Report 20361708 (Version 2)
Quarter: 2022Q1

REPORT INFORMATION
  Report Type: Spontaneous
  Country: US (occurrence: US)
  Receive Date: 20220121
  Receipt Date: 20220204
  Transmission Date: 20220424
  Serious: Yes (Hospitalization, Other)
  Sender: FDA-Public Use
  Company Number: US-MLMSERVICE-20220113-3311244-1

PATIENT
  Age: 65 Year
  Sex: Male
  Weight: 99.8 kg

DRUGS (6)
  1. ANCEF [Suspect]
     Active Substance: CEFAZOLIN SODIUM
     Indication: Prophylaxis
     Dosage: AT 09:40
     Route: 042
     Dates: start: 20210206, end: 20210206
  2. ANCEF [Suspect]
     Active Substance: CEFAZOLIN SODIUM
     Dosage: AT 14:51
     Route: 042
     Dates: start: 20210206, end: 20210206
  3. ANCEF [Suspect]
     Active Substance: CEFAZOLIN SODIUM
     Dosage: AT 16:33
     Route: 042
     Dates: start: 20210206, end: 20210206
  4. ANCEF [Suspect]
     Active Substance: CEFAZOLIN SODIUM
     Dosage: AT 00:14
     Route: 042
     Dates: start: 20210306, end: 20210306
  5. ANCEF [Suspect]
     Active Substance: CEFAZOLIN SODIUM
     Dosage: AT 06:38
     Route: 042
     Dates: start: 20210306, end: 20210306
  6. ASPIRIN [Concomitant]
     Active Substance: ASPIRIN
     Indication: Prophylaxis
     Dosage: UNKNOWN
     Route: 065

REACTIONS (2)
  - Thrombocytopenia [Recovered/Resolved]
  - Coagulopathy [Recovered/Resolved]

NARRATIVE: CASE EVENT DATE: 20210206
